FAERS Safety Report 9516944 (Version 2)
Quarter: 2013Q3

REPORT INFORMATION
  Report Type: Spontaneous
  Country: US (occurrence: US)
  Receive Date: 20130911
  Receipt Date: 20130911
  Transmission Date: 20140515
  Serious: Yes (Hospitalization)
  Sender: FDA-Public Use
  Company Number: US-PFIZER INC-2012116837

PATIENT
  Age: 76 Year
  Sex: Male
  Weight: 97 kg

DRUGS (3)
  1. VFEND [Suspect]
     Indication: ASPERGILLUS INFECTION
     Dosage: UNK
     Dates: start: 201102
  2. VFEND [Suspect]
     Indication: WOUND
     Dosage: 200 MG, 2X/DAY
     Dates: start: 20120206
  3. VFEND [Suspect]
     Indication: FUNGAL INFECTION
     Dosage: UNK
     Dates: start: 201308

REACTIONS (2)
  - Fungal infection [Unknown]
  - Disease recurrence [Unknown]
